FAERS Safety Report 20905851 (Version 1)
Quarter: 2022Q2

REPORT INFORMATION
  Report Type: Report from Study
  Country: IT (occurrence: IT)
  Receive Date: 20220602
  Receipt Date: 20220602
  Transmission Date: 20220721
  Serious: Yes (Hospitalization)
  Sender: FDA-Public Use
  Company Number: None

PATIENT
  Age: 14 Year
  Sex: Female

DRUGS (2)
  1. ZOLOFT [Suspect]
     Active Substance: SERTRALINE HYDROCHLORIDE
     Dosage: 30 DF, TOTAL
     Route: 048
  2. RISPERIDONE [Suspect]
     Active Substance: RISPERIDONE
     Dosage: 60 DF, TOTAL
     Route: 048

REACTIONS (5)
  - Intentional overdose [Recovering/Resolving]
  - Drug abuse [Recovering/Resolving]
  - Vomiting [Recovering/Resolving]
  - Headache [Recovering/Resolving]
  - Speech disorder [Recovering/Resolving]

NARRATIVE: CASE EVENT DATE: 20210614
